FAERS Safety Report 12128267 (Version 1)
Quarter: 2016Q1

REPORT INFORMATION
  Report Type: Spontaneous
  Country: US (occurrence: US)
  Receive Date: 20160229
  Receipt Date: 20160229
  Transmission Date: 20160526
  Serious: No
  Sender: FDA-Public Use
  Company Number: US-GALDERMA-US15006313

PATIENT
  Age: 55 Year
  Sex: Female

DRUGS (2)
  1. UNKNOWN BROWN BAR SOAP FOR ACNE FROM DOCTOR [Concomitant]
     Indication: THERAPEUTIC SKIN CARE TOPICAL
     Route: 061
     Dates: start: 2012
  2. DOXYCYCLINE. [Suspect]
     Active Substance: DOXYCYCLINE
     Indication: ROSACEA
     Route: 048

REACTIONS (1)
  - Pruritus [Recovered/Resolved]
